FAERS Safety Report 21876937 (Version 1)
Quarter: 2023Q1

REPORT INFORMATION
  Report Type: Spontaneous
  Country: FR (occurrence: FR)
  Receive Date: 20230118
  Receipt Date: 20230118
  Transmission Date: 20230418
  Serious: Yes (Life-Threatening, Hospitalization)
  Sender: FDA-Public Use
  Company Number: None

PATIENT
  Age: 39 Year
  Sex: Male

DRUGS (5)
  1. BROMAZEPAM [Suspect]
     Active Substance: BROMAZEPAM
     Dosage: BETWEEN 1 AND 10 TABLETS/D
     Dates: start: 2012
  2. CLONAZEPAM [Suspect]
     Active Substance: CLONAZEPAM
  3. METHADONE [Suspect]
     Active Substance: METHADONE HYDROCHLORIDE
  4. DIAZEPAM [Suspect]
     Active Substance: DIAZEPAM
  5. ALPRAZOLAM [Suspect]
     Active Substance: ALPRAZOLAM

REACTIONS (11)
  - Coma [Recovered/Resolved]
  - Toxic encephalopathy [Recovered/Resolved]
  - Pneumonitis [Unknown]
  - Rhabdomyolysis [Unknown]
  - Hyperkalaemia [Recovering/Resolving]
  - Toxicity to various agents [Unknown]
  - Hepatic cytolysis [Recovering/Resolving]
  - Hyperammonaemia [Recovering/Resolving]
  - Encephalopathy [Recovering/Resolving]
  - Suicide attempt [Recovered/Resolved]
  - Intentional product misuse [Unknown]
